FAERS Safety Report 6929925-X (Version None)
Quarter: 2010Q3

REPORT INFORMATION
  Report Type: 
  Country: None (occurrence: None)
  Receive Date: 20100817
  Receipt Date: 20100817
  Transmission Date: 20110219
  Serious: Yes (Other)
  Sender: FDA-Public Use
  Company Number: None

PATIENT
  Age: 68 Year
  Sex: Male
  Weight: 58.0604 kg

DRUGS (2)
  1. DEXILANT [Suspect]
     Indication: ULCER
     Dosage: 60 MG ONCE DAILY MOUTH
     Route: 048
     Dates: start: 20100501
  2. DEXILANT [Suspect]
     Indication: ULCER
     Dosage: 60 MG ONCE DAILY MOUTH
     Route: 048
     Dates: start: 20100601

REACTIONS (2)
  - DIARRHOEA [None]
  - WEIGHT DECREASED [None]
